FAERS Safety Report 12203207 (Version 1)
Quarter: 2016Q1

REPORT INFORMATION
  Report Type: Spontaneous
  Country: US (occurrence: None)
  Receive Date: 20160321
  Receipt Date: 20160321
  Transmission Date: 20160526
  Serious: Yes (Life-Threatening, Hospitalization)
  Sender: FDA-Public Use
  Company Number: None

PATIENT
  Age: 40 Year
  Sex: Male
  Weight: 109.7 kg

DRUGS (2)
  1. PHENOL. [Suspect]
     Active Substance: PHENOL
     Indication: OROPHARYNGEAL PAIN
     Dosage: 2 PUFF(S) PRN TOP
     Route: 061
     Dates: start: 20151117, end: 20151118
  2. HYDROCHLOROTHIAZIDE/LISINOPRIL [Suspect]
     Active Substance: HYDROCHLOROTHIAZIDE\LISINOPRIL
     Indication: HYPERTENSION
     Dosage: 25/40 MG EVERY DAY PO
     Route: 048
     Dates: start: 20050301, end: 20151117

REACTIONS (1)
  - Angioedema [None]

NARRATIVE: CASE EVENT DATE: 20151117
